FAERS Safety Report 11561241 (Version 1)
Quarter: 2015Q3

REPORT INFORMATION
  Report Type: Spontaneous
  Country: US (occurrence: US)
  Receive Date: 20150916
  Receipt Date: 20150916
  Transmission Date: 20151125
  Serious: No
  Sender: FDA-Public Use
  Company Number: US-ELI_LILLY_AND_COMPANY-US200810005505

PATIENT
  Sex: Female

DRUGS (3)
  1. ANTIVERT /00007101/ [Concomitant]
  2. SYNTHROID [Concomitant]
     Active Substance: LEVOTHYROXINE SODIUM
  3. FORTEO [Suspect]
     Active Substance: TERIPARATIDE
     Indication: OSTEOPOROSIS
     Dosage: 20 UG, DAILY (1/D)

REACTIONS (3)
  - Spinal fusion surgery [Not Recovered/Not Resolved]
  - Body height decreased [Not Recovered/Not Resolved]
  - Kyphosis [Not Recovered/Not Resolved]
